FAERS Safety Report 15899085 (Version 2)
Quarter: 2019Q1

REPORT INFORMATION
  Report Type: Spontaneous
  Country: JP (occurrence: JP)
  Receive Date: 20190201
  Receipt Date: 20190213
  Transmission Date: 20190417
  Serious: Yes (Hospitalization, Other)
  Sender: FDA-Public Use
  Company Number: JP-GLAXOSMITHKLINE-JP2019JPN015465

PATIENT
  Age: 50 Year
  Sex: Female

DRUGS (7)
  1. LUNESTA [Concomitant]
     Active Substance: ESZOPICLONE
     Dosage: 4 MG, QD, BEFORE BEDTIME
     Route: 048
  2. LAMICTAL [Suspect]
     Active Substance: LAMOTRIGINE
     Indication: BIPOLAR DISORDER
     Dosage: 100 MG, QD, BEFORE BEDTIME
     Route: 048
  3. FAMOTIDINE OD [Concomitant]
     Active Substance: FAMOTIDINE
     Dosage: 40 MG, QD, IN THE MORNING
     Route: 048
  4. CHINESE MEDICINE [Concomitant]
     Active Substance: UNSPECIFIED INGREDIENT
     Dosage: 2.5 G, BID, BEFORE BREAKFAST AND LUNCH
     Route: 048
  5. CLOTIAZEPAM [Concomitant]
     Active Substance: CLOTIAZEPAM
     Dosage: 5 MG, QID, AFTER MEALS AND BEFORE BEDTIME
     Route: 048
  6. AMOXAN [Concomitant]
     Active Substance: AMOXAPINE
     Dosage: 10 MG, TID, IN THE MORNING, EVENING AND BEFORE BEDTIME
     Route: 048
  7. ATORVASTATIN [Concomitant]
     Active Substance: ATORVASTATIN
     Dosage: 5 MG, QD, AFTER DINNER
     Route: 048

REACTIONS (1)
  - Cholecystitis [Recovering/Resolving]

NARRATIVE: CASE EVENT DATE: 20190127
